FAERS Safety Report 8370020-3 (Version None)
Quarter: 2012Q2

REPORT INFORMATION
  Report Type: 
  Country: None (occurrence: None)
  Receive Date: 20120518
  Receipt Date: 20120508
  Transmission Date: 20120825
  Serious: Yes (Other)
  Sender: FDA-Public Use
  Company Number: US-JNJFOC-20120511170

PATIENT
  Age: 33 Year
  Sex: Male

DRUGS (3)
  1. AMBIEN CR [Suspect]
     Indication: INSOMNIA
     Route: 065
     Dates: start: 20080701
  2. DIPHENHYDRAMINE HCL [Suspect]
     Indication: PRODUCT USED FOR UNKNOWN INDICATION
     Route: 065
  3. PAIN MEDICATIONS (NOS) [Concomitant]
     Route: 065

REACTIONS (5)
  - BALANCE DISORDER [None]
  - SOMNAMBULISM [None]
  - MENTAL IMPAIRMENT [None]
  - LACRIMATION INCREASED [None]
  - SPEECH DISORDER [None]
